FAERS Safety Report 14407893 (Version 4)
Quarter: 2018Q1

REPORT INFORMATION
  Report Type: Spontaneous
  Country: CH (occurrence: CH)
  Receive Date: 20180118
  Receipt Date: 20180205
  Transmission Date: 20180509
  Serious: Yes (Disabling, Other)
  Sender: FDA-Public Use
  Company Number: CH-PFIZER INC-2018020850

PATIENT
  Age: 63 Year
  Sex: Female

DRUGS (9)
  1. KALCIPOS D3 [Concomitant]
     Dosage: UNK, 1X/DAY
     Route: 048
  2. VITAMIN D3 STREULI [Concomitant]
     Active Substance: CHOLECALCIFEROL
     Dosage: 2 ML, WEEKLY
     Route: 048
  3. PANTOZOL [Suspect]
     Active Substance: PANTOPRAZOLE SODIUM
     Indication: GASTROOESOPHAGEAL REFLUX DISEASE
     Dosage: 20 MG, 1X/DAY
     Route: 048
  4. TEMESTA (LORAZEPAM) [Concomitant]
     Active Substance: LORAZEPAM
     Dosage: UNK
     Route: 048
  5. REQUIP [Concomitant]
     Active Substance: ROPINIROLE HYDROCHLORIDE
     Dosage: 4 MG, 1X/DAY
     Route: 048
  6. METAMIZOLE SODIUM [Concomitant]
     Active Substance: METAMIZOLE SODIUM
     Dosage: UNK
     Route: 048
  7. PROLIA [Suspect]
     Active Substance: DENOSUMAB
     Indication: OSTEOPOROSIS
     Dosage: 60 MG, CYCLIC (EVERY SIX MONTHS)
     Route: 058
     Dates: start: 201310, end: 201704
  8. CIPRALEX [Suspect]
     Active Substance: ESCITALOPRAM OXALATE
     Indication: DEPRESSION
     Dosage: UNK
     Route: 048
  9. DAFALGAN [Concomitant]
     Active Substance: ACETAMINOPHEN
     Dosage: 1 G, 4X/DAY
     Route: 048

REACTIONS (3)
  - Lumbar vertebral fracture [Not Recovered/Not Resolved]
  - Bone density decreased [Not Recovered/Not Resolved]
  - Rebound effect [Not Recovered/Not Resolved]

NARRATIVE: CASE EVENT DATE: 2017
